FAERS Safety Report 17249193 (Version 1)
Quarter: 2020Q1

REPORT INFORMATION
  Report Type: Spontaneous
  Country: AE (occurrence: AE)
  Receive Date: 20200108
  Receipt Date: 20200108
  Transmission Date: 20200409
  Serious: Yes (Hospitalization, Other)
  Sender: FDA-Public Use
  Company Number: AE-VALIDUS PHARMACEUTICALS LLC-AE-2020VAL000022

PATIENT

DRUGS (3)
  1. DOPAMINE HYDROCHLORIDE. [Suspect]
     Active Substance: DOPAMINE HYDROCHLORIDE
     Indication: PRODUCT USED FOR UNKNOWN INDICATION
     Dosage: UNK
     Route: 065
  2. NOREPINEPHRINE. [Suspect]
     Active Substance: NOREPINEPHRINE
     Indication: PRODUCT USED FOR UNKNOWN INDICATION
     Dosage: UNK
     Route: 065
  3. FUROSEMIDE. [Suspect]
     Active Substance: FUROSEMIDE
     Indication: PRODUCT USED FOR UNKNOWN INDICATION
     Dosage: UNK
     Route: 042

REACTIONS (7)
  - Left ventricular failure [Recovered/Resolved]
  - C-reactive protein increased [Recovered/Resolved]
  - Left ventricular hypertrophy [Recovered/Resolved]
  - Condition aggravated [Recovered/Resolved]
  - Cardiac septal hypertrophy [Recovered/Resolved]
  - White blood cell count increased [Recovered/Resolved]
  - Drug resistance [Recovered/Resolved]
